FAERS Safety Report 20821804 (Version 1)
Quarter: 2022Q2

REPORT INFORMATION
  Report Type: Spontaneous
  Country: US (occurrence: US)
  Receive Date: 20220512
  Receipt Date: 20220512
  Transmission Date: 20220721
  Serious: No
  Sender: FDA-Public Use
  Company Number: US-PFIZER INC-202200315562

PATIENT
  Sex: Female

DRUGS (3)
  1. CYTOMEL [Suspect]
     Active Substance: LIOTHYRONINE SODIUM
     Dosage: 30 UG, DAILY (6 X 5 MCG TABLETS)
  2. CYTOMEL [Suspect]
     Active Substance: LIOTHYRONINE SODIUM
     Dosage: 30 UG, DAILY (ONE 5MCG AND ONE 25MCG)
  3. CYTOMEL [Suspect]
     Active Substance: LIOTHYRONINE SODIUM
     Dosage: 25 UG, DAILY (25 MCG BEFORE )

REACTIONS (2)
  - Stress [Unknown]
  - Wrong technique in product usage process [Unknown]
